FAERS Safety Report 26066856 (Version 1)
Quarter: 2025Q4

REPORT INFORMATION
  Report Type: Spontaneous
  Country: US (occurrence: US)
  Receive Date: 20251119
  Receipt Date: 20251119
  Transmission Date: 20260117
  Serious: No
  Sender: SANOFI AVENTIS
  Company Number: US-SA-2025SA345136

PATIENT
  Sex: Male
  Weight: 30.884 kg

DRUGS (1)
  1. DUPIXENT [Suspect]
     Active Substance: DUPILUMAB
     Indication: Hypopituitarism
     Dosage: 300 MG, QOW
     Route: 058

REACTIONS (1)
  - Product use in unapproved indication [Unknown]
